FAERS Safety Report 14303950 (Version 1)
Quarter: 2017Q4

REPORT INFORMATION
  Report Type: Spontaneous
  Country: FR (occurrence: FR)
  Receive Date: 20171219
  Receipt Date: 20171219
  Transmission Date: 20180321
  Serious: Yes (Life-Threatening, Other)
  Sender: FDA-Public Use
  Company Number: FR-OTSUKA-KJ20092058

PATIENT

DRUGS (11)
  1. DEPAMIDE [Concomitant]
     Active Substance: VALPROMIDE
     Route: 065
  2. FLUPENTIXOL [Concomitant]
     Active Substance: FLUPENTIXOL
     Dosage: FLUANXOL LP
  3. TEMESTA (LORAZEPAM) [Concomitant]
     Active Substance: LORAZEPAM
     Route: 065
     Dates: start: 20090430
  4. LORAZEPAM. [Concomitant]
     Active Substance: LORAZEPAM
     Indication: ANXIETY
     Dosage: FORM TAB
     Route: 048
     Dates: start: 20090430
  5. TERCIAN [Suspect]
     Active Substance: CYAMEMAZINE
     Indication: AGITATION
     Route: 065
     Dates: start: 20090430
  6. LOXAPAC [Concomitant]
     Active Substance: LOXAPINE SUCCINATE
     Route: 065
  7. ABILIFY [Suspect]
     Active Substance: ARIPIPRAZOLE
     Indication: SCHIZOPHRENIA
     Dosage: 10 MG, UNK
     Route: 030
     Dates: start: 20090430
  8. LORAZEPAM. [Concomitant]
     Active Substance: LORAZEPAM
     Route: 065
  9. PARKINANE [Concomitant]
     Active Substance: TRIHEXYPHENIDYL HYDROCHLORIDE
     Indication: EXTRAPYRAMIDAL DISORDER
     Route: 065
     Dates: start: 20090430
  10. OPC-14597IMD [Suspect]
     Active Substance: ARIPIPRAZOLE
     Indication: SCHIZOPHRENIA
     Route: 030
     Dates: start: 2008
  11. FLUANXOL [Concomitant]
     Active Substance: FLUPENTIXOL
     Route: 065

REACTIONS (1)
  - Hypotension [Recovered/Resolved]

NARRATIVE: CASE EVENT DATE: 20090430
